FAERS Safety Report 10157702 (Version 1)
Quarter: 2014Q2

REPORT INFORMATION
  Report Type: Spontaneous
  Country: BR (occurrence: BR)
  Receive Date: 20140507
  Receipt Date: 20140507
  Transmission Date: 20141212
  Serious: Yes (Other)
  Sender: FDA-Public Use
  Company Number: BR-SA-2014SA055407

PATIENT
  Sex: Female
  Weight: 67 kg

DRUGS (5)
  1. LANTUS [Suspect]
     Indication: TYPE 2 DIABETES MELLITUS
     Route: 058
     Dates: start: 201304
  2. LANTUS [Suspect]
     Indication: TYPE 2 DIABETES MELLITUS
     Route: 058
  3. URSACOL [Concomitant]
     Indication: LIVER DISORDER
     Route: 048
  4. CAPTOPRIL [Concomitant]
     Indication: HYPERTENSION
     Route: 048
  5. TRAYENTA [Concomitant]
     Indication: TYPE 2 DIABETES MELLITUS
     Route: 048

REACTIONS (2)
  - Hepatic cirrhosis [Unknown]
  - Hyperglycaemia [Recovering/Resolving]
